FAERS Safety Report 10170782 (Version 3)
Quarter: 2014Q3

REPORT INFORMATION
  Report Type: Spontaneous
  Country: FR (occurrence: FR)
  Receive Date: 20140514
  Receipt Date: 20140702
  Transmission Date: 20150326
  Serious: Yes (Hospitalization, Disabling)
  Sender: FDA-Public Use
  Company Number: FR-ASTRAZENECA-2014SE26134

PATIENT
  Age: 60 Year
  Sex: Male

DRUGS (9)
  1. XEROQUEL [Suspect]
     Active Substance: QUETIAPINE FUMARATE
     Indication: BIPOLAR DISORDER
     Route: 048
     Dates: start: 2014, end: 2014
  2. ARTANE [Concomitant]
     Active Substance: TRIHEXYPHENIDYL HYDROCHLORIDE
     Route: 048
     Dates: start: 201404
  3. XEROQUEL [Suspect]
     Active Substance: QUETIAPINE FUMARATE
     Indication: BIPOLAR DISORDER
     Route: 048
     Dates: start: 2014, end: 20140402
  4. RIVOTRIL [Concomitant]
     Active Substance: CLONAZEPAM
     Dates: start: 2014
  5. ARTANE [Concomitant]
     Active Substance: TRIHEXYPHENIDYL HYDROCHLORIDE
     Route: 048
     Dates: end: 201404
  6. CLOZAPINE. [Concomitant]
     Active Substance: CLOZAPINE
  7. XEROQUEL [Suspect]
     Active Substance: QUETIAPINE FUMARATE
     Indication: BIPOLAR DISORDER
     Route: 048
     Dates: start: 2012, end: 2014
  8. ESPERAL [Concomitant]
     Active Substance: DISULFIRAM
     Indication: ALCOHOL WITHDRAWAL SYNDROME
     Route: 048
     Dates: start: 201312
  9. SERESTA [Concomitant]
     Active Substance: OXAZEPAM
     Route: 048

REACTIONS (4)
  - Extrapyramidal disorder [Unknown]
  - Akathisia [Unknown]
  - Dyskinesia [Recovering/Resolving]
  - Parkinsonism [Unknown]

NARRATIVE: CASE EVENT DATE: 2014
